FAERS Safety Report 5098554-8 (Version None)
Quarter: 2006Q3

REPORT INFORMATION
  Report Type: 
  Country: None (occurrence: None)
  Receive Date: 20060906
  Receipt Date: 20060302
  Transmission Date: 20061208
  Serious: Yes (Hospitalization)
  Sender: FDA-Public Use
  Company Number: US-GLAXOSMITHKLINE-A0595891A

PATIENT
  Age: 69 Year
  Sex: Female
  Weight: 93.6 kg

DRUGS (2)
  1. REQUIP [Suspect]
     Indication: RESTLESS LEGS SYNDROME
     Dosage: 1MG AT NIGHT
     Route: 048
  2. XANAX [Concomitant]

REACTIONS (5)
  - ANAEMIA [None]
  - ANXIETY [None]
  - HAEMOGLOBIN DECREASED [None]
  - NERVOUSNESS [None]
  - RESTLESSNESS [None]
